FAERS Safety Report 6477469-4 (Version None)
Quarter: 2009Q4

REPORT INFORMATION
  Report Type: 
  Country: None (occurrence: None)
  Receive Date: 20091207
  Receipt Date: 20091116
  Transmission Date: 20100525
  Serious: Yes (Hospitalization)
  Sender: FDA-Public Use
  Company Number: FR-SANOFI-AVENTIS-2009SA003400

PATIENT
  Age: 82 Year
  Sex: Female
  Weight: 60 kg

DRUGS (10)
  1. LOVENOX [Suspect]
     Indication: THROMBOSIS PROPHYLAXIS
     Route: 058
     Dates: end: 20091007
  2. PREVISCAN [Concomitant]
     Dates: end: 20090801
  3. LASILIX [Concomitant]
     Route: 048
     Dates: end: 20091008
  4. LASILIX [Concomitant]
     Route: 048
     Dates: start: 20091009
  5. AMOXICILLIN [Concomitant]
     Dates: start: 20090925, end: 20090930
  6. PARACETAMOL [Concomitant]
     Route: 048
     Dates: start: 20090925
  7. GLUCOR [Concomitant]
     Route: 048
  8. FORLAX [Concomitant]
     Route: 048
  9. LYRICA [Concomitant]
     Route: 048
  10. HEMIGOXINE NATIVELLE [Concomitant]
     Route: 048

REACTIONS (3)
  - ANAEMIA [None]
  - RENAL FAILURE [None]
  - TRAUMATIC HAEMATOMA [None]
